FAERS Safety Report 11892381 (Version 1)
Quarter: 2016Q1

REPORT INFORMATION
  Report Type: Spontaneous
  Country: PL (occurrence: PL)
  Receive Date: 20160106
  Receipt Date: 20160106
  Transmission Date: 20160526
  Serious: Yes (Other)
  Sender: FDA-Public Use
  Company Number: PHHY2015PL170556

PATIENT
  Age: 16 Year
  Sex: Female

DRUGS (5)
  1. CISPLATIN. [Suspect]
     Active Substance: CISPLATIN
     Indication: UTERINE CANCER
     Route: 065
  2. INTERFERON [Suspect]
     Active Substance: INTERFERON
     Indication: UTERINE CANCER
     Route: 065
  3. BLEOMYCIN [Suspect]
     Active Substance: BLEOMYCIN SULFATE
     Indication: UTERINE CANCER
     Route: 065
  4. DOXORUBICIN [Suspect]
     Active Substance: DOXORUBICIN
     Indication: UTERINE CANCER
     Route: 065
  5. VINCRISTINE [Suspect]
     Active Substance: VINCRISTINE
     Indication: UTERINE CANCER
     Route: 065

REACTIONS (3)
  - Chronic kidney disease [Recovering/Resolving]
  - Hypothyroidism [Recovering/Resolving]
  - Anaemia [Recovering/Resolving]
